FAERS Safety Report 6404721-0 (Version None)
Quarter: 2009Q4

REPORT INFORMATION
  Report Type: 
  Country: None (occurrence: None)
  Receive Date: 20091016
  Receipt Date: 20091009
  Transmission Date: 20100525
  Serious: Yes (Hospitalization)
  Sender: FDA-Public Use
  Company Number: JP-EISAI INC.-E2090-00828-SPO-JP

PATIENT
  Sex: Male

DRUGS (5)
  1. EXCEGRAN [Suspect]
     Indication: EPILEPSY
     Route: 048
     Dates: start: 20051202
  2. EXCEGRAN [Suspect]
     Route: 048
     Dates: end: 20070606
  3. EXCEGRAN [Suspect]
     Dosage: UNKNOWN
     Route: 048
     Dates: start: 20070607, end: 20090825
  4. EXCEGRAN [Suspect]
     Dosage: DOSE REDUCED
     Route: 048
     Dates: start: 20090826, end: 20090903
  5. EXCEGRAN [Suspect]
     Dosage: DOSE REDUCED
     Route: 048
     Dates: start: 20090904, end: 20090901

REACTIONS (1)
  - NEPHROLITHIASIS [None]
